FAERS Safety Report 4339754-1 (Version None)
Quarter: 2004Q2

REPORT INFORMATION
  Report Type: 
  Country: None (occurrence: None)
  Receive Date: 20040415
  Receipt Date: 20040415
  Transmission Date: 20050107
  Serious: Yes (Life-Threatening)
  Sender: FDA-Public Use
  Company Number: None

PATIENT
  Age: 19 Year
  Sex: Male

DRUGS (2)
  1. ADDERALL XR 30 [Suspect]
     Indication: DISTURBANCE IN ATTENTION
     Dosage: 30 MG DAILY
     Dates: start: 20040312, end: 20040412
  2. CITALOPRAM [Concomitant]

REACTIONS (6)
  - HAEMORRHAGE [None]
  - HYPERSENSITIVITY [None]
  - INTENTIONAL SELF-INJURY [None]
  - OBSESSIVE THOUGHTS [None]
  - PARANOIA [None]
  - WEIGHT DECREASED [None]
